FAERS Safety Report 19141285 (Version 1)
Quarter: 2021Q2

REPORT INFORMATION
  Report Type: Spontaneous
  Country: US (occurrence: US)
  Receive Date: 20210415
  Receipt Date: 20210415
  Transmission Date: 20210717
  Serious: No
  Sender: FDA-Public Use
  Company Number: US-SA-2021SA123088

PATIENT
  Sex: Female

DRUGS (6)
  1. ALPRAZOLAM. [Concomitant]
     Active Substance: ALPRAZOLAM
  2. ACETAZOLAMID [Concomitant]
     Active Substance: ACETAZOLAMIDE
  3. CITALOPRAM [Concomitant]
     Active Substance: CITALOPRAM HYDROBROMIDE
  4. DUPIXENT [Suspect]
     Active Substance: DUPILUMAB
     Indication: DERMATITIS ATOPIC
     Route: 058
     Dates: start: 20180728
  5. WIXELA INHUB [Concomitant]
     Active Substance: FLUTICASONE PROPIONATE\SALMETEROL XINAFOATE
  6. PREDNISONE. [Concomitant]
     Active Substance: PREDNISONE

REACTIONS (2)
  - Dermatitis atopic [Not Recovered/Not Resolved]
  - Surgery [Not Recovered/Not Resolved]

NARRATIVE: CASE EVENT DATE: 2021
